FAERS Safety Report 9585895 (Version 2)
Quarter: 2013Q4

REPORT INFORMATION
  Report Type: Spontaneous
  Country: US (occurrence: US)
  Receive Date: 20131003
  Receipt Date: 20131014
  Transmission Date: 20140711
  Serious: No
  Sender: FDA-Public Use
  Company Number: US-009507513-1310USA001011

PATIENT
  Sex: 0
  Weight: 54.42 kg

DRUGS (1)
  1. NEXPLANON [Suspect]
     Dosage: 1 ROD / THREE YEARS
     Route: 059
     Dates: start: 20130927

REACTIONS (2)
  - Device difficult to use [Unknown]
  - Product quality issue [Unknown]
